FAERS Safety Report 8297615-X (Version None)
Quarter: 2012Q2

REPORT INFORMATION
  Report Type: 
  Country: None (occurrence: None)
  Receive Date: 20120419
  Receipt Date: 20120410
  Transmission Date: 20120825
  Serious: Yes (Hospitalization)
  Sender: FDA-Public Use
  Company Number: NZ-B.I. PHARMACEUTICALS,INC./RIDGEFIELD-2012-EU-01000GD

PATIENT
  Age: 67 Year
  Sex: Male
  Weight: 90 kg

DRUGS (11)
  1. ACETAMINOPHEN [Concomitant]
  2. TRAMADOL [Concomitant]
  3. GLIPIZIDE [Concomitant]
  4. METFORMIN HCL [Concomitant]
  5. CHLORTHALIDONE [Concomitant]
  6. LACTULOSE [Concomitant]
  7. QUINAPRIL [Concomitant]
  8. ATORVASTATIN [Concomitant]
  9. DABIGATRAN ETEXILATE [Suspect]
     Indication: ATRIAL FIBRILLATION
     Dosage: 300 MG
  10. ONDANSETRON [Concomitant]
  11. DILTIAZEM HCL [Concomitant]

REACTIONS (2)
  - PERIPHERAL ISCHAEMIA [None]
  - CONTRAINDICATION TO SURGERY [None]
